FAERS Safety Report 4306014-4 (Version None)
Quarter: 2004Q1

REPORT INFORMATION
  Report Type: 
  Country: None (occurrence: None)
  Receive Date: 20040225
  Receipt Date: 20040210
  Transmission Date: 20041129
  Serious: Yes (Hospitalization, Other)
  Sender: FDA-Public Use
  Company Number: USA040259063

PATIENT
  Age: 70 Year
  Sex: Male

DRUGS (1)
  1. HUMALOG MIX 75/25 [Suspect]
     Indication: DIABETES MELLITUS
     Dates: start: 20000101

REACTIONS (3)
  - AGE INDETERMINATE MYOCARDIAL INFARCTION [None]
  - CARDIAC DISORDER [None]
  - PNEUMONIA [None]
